FAERS Safety Report 4546099-3 (Version None)
Quarter: 2005Q1

REPORT INFORMATION
  Report Type: 
  Country: None (occurrence: None)
  Receive Date: 20050103
  Receipt Date: 20041222
  Transmission Date: 20050727
  Serious: Yes (Other)
  Sender: FDA-Public Use
  Company Number: A03200403130

PATIENT
  Age: 52 Year
  Sex: Male

DRUGS (7)
  1. AMBIEN [Suspect]
     Indication: INSOMNIA
     Dosage: 10 MG HS - ORAL
     Route: 048
     Dates: start: 20011016, end: 20011106
  2. ATIVAN [Suspect]
     Indication: HEADACHE
     Dosage: ORAL
     Route: 048
     Dates: start: 20011001, end: 20011106
  3. ZOLOFT [Suspect]
  4. GLYBURIDE [Concomitant]
  5. ACETAMINOPHEN [Concomitant]
  6. METFORMIM HYDROCHLORIDE [Concomitant]
  7. .. [Concomitant]

REACTIONS (10)
  - ASTHENIA [None]
  - BLOOD GLUCOSE DECREASED [None]
  - CONFUSIONAL STATE [None]
  - DRUG INEFFECTIVE [None]
  - FLASHBACK [None]
  - HALLUCINATION, VISUAL [None]
  - MEMORY IMPAIRMENT [None]
  - PARANOIA [None]
  - PSYCHOTIC DISORDER [None]
  - VISION BLURRED [None]
